FAERS Safety Report 10437511 (Version 1)
Quarter: 2014Q3

REPORT INFORMATION
  Report Type: Spontaneous
  Country: US (occurrence: US)
  Receive Date: 20140908
  Receipt Date: 20140908
  Transmission Date: 20150326
  Serious: No
  Sender: FDA-Public Use
  Company Number: US-BRISTOL-MYERS SQUIBB COMPANY-19716125

PATIENT
  Age: 40 Year
  Sex: Female
  Weight: 95.69 kg

DRUGS (2)
  1. ABILIFY [Suspect]
     Active Substance: ARIPIPRAZOLE
     Dosage: INCREASED TO 20MG
     Dates: start: 2012
  2. TROSPIUM CHLORIDE. [Concomitant]
     Active Substance: TROSPIUM CHLORIDE
     Dosage: TROSPIUM ER

REACTIONS (1)
  - Glucose tolerance impaired [Unknown]

NARRATIVE: CASE EVENT DATE: 2013
